FAERS Safety Report 6530746-0 (Version None)
Quarter: 2010Q1

REPORT INFORMATION
  Report Type: 
  Country: None (occurrence: None)
  Receive Date: 20100108
  Receipt Date: 20090115
  Transmission Date: 20100710
  Serious: No
  Sender: FDA-Public Use
  Company Number: A0763782A

PATIENT
  Age: 48 Year
  Sex: Male

DRUGS (1)
  1. LOVAZA [Suspect]
     Indication: CROHN'S DISEASE
     Dosage: 2CAP TWICE PER DAY
     Route: 048
     Dates: start: 20090106

REACTIONS (3)
  - DISTURBANCE IN ATTENTION [None]
  - DIZZINESS [None]
  - FEELING ABNORMAL [None]
